FAERS Safety Report 11398727 (Version 1)
Quarter: 2015Q3

REPORT INFORMATION
  Report Type: Spontaneous
  Country: IT (occurrence: IT)
  Receive Date: 20150820
  Receipt Date: 20150820
  Transmission Date: 20151125
  Serious: Yes (Life-Threatening)
  Sender: FDA-Public Use
  Company Number: IT-TEVA-585753ACC

PATIENT
  Age: 58 Year
  Sex: Female

DRUGS (1)
  1. PACLITAXEL TEVA - 6 MG/ML CONCENTRATO PER SOLUZIONE PER INFUSIONE - TE [Suspect]
     Active Substance: PACLITAXEL
     Indication: OVARIAN CANCER
     Dosage: 250 MG TOTAL; CONCENTRATE FOR SOLUTION FOR INFUSION
     Route: 042
     Dates: start: 20150805, end: 20150805

REACTIONS (11)
  - Vomiting [Recovered/Resolved]
  - Anaphylactic shock [Recovered/Resolved]
  - Erythema [Unknown]
  - Hyperhidrosis [Recovered/Resolved]
  - Hypotension [Recovered/Resolved]
  - Atrial fibrillation [Recovered/Resolved]
  - Anal sphincter atony [Unknown]
  - Chest pain [Recovered/Resolved]
  - Blood pressure decreased [Unknown]
  - Feeling hot [Unknown]
  - Pulse absent [Unknown]

NARRATIVE: CASE EVENT DATE: 20150805
